FAERS Safety Report 20644284 (Version 6)
Quarter: 2022Q2

REPORT INFORMATION
  Report Type: Other
  Country: CA (occurrence: None)
  Receive Date: 20220328
  Receipt Date: 20220629
  Transmission Date: 20220721
  Serious: Yes (Hospitalization, Other)
  Sender: FDA-Public Use
  Company Number: CA-ROCHE-2669128

PATIENT
  Sex: Male

DRUGS (10)
  1. OCREVUS [Suspect]
     Active Substance: OCRELIZUMAB
     Indication: Relapsing-remitting multiple sclerosis
     Dosage: 300 MG AT DAY 0 AND 14, THEN 600 MG EVERY 6 MONTH
     Route: 042
     Dates: start: 20200303
  2. EMGALITY [Concomitant]
     Active Substance: GALCANEZUMAB-GNLM
     Indication: Migraine
  3. CLOBAZAM [Concomitant]
     Active Substance: CLOBAZAM
  4. LAMOTRIGINE [Concomitant]
     Active Substance: LAMOTRIGINE
  5. BACLOFEN [Concomitant]
     Active Substance: BACLOFEN
  6. GABAPENTIN [Concomitant]
     Active Substance: GABAPENTIN
  7. GALCANEZUMAB [Concomitant]
     Active Substance: GALCANEZUMAB
  8. LEVOTHYROXINE [Concomitant]
     Active Substance: LEVOTHYROXINE
  9. SOLIFENACIN [Concomitant]
     Active Substance: SOLIFENACIN
  10. BOTOX [Concomitant]
     Active Substance: ONABOTULINUMTOXINA

REACTIONS (25)
  - Deafness [Recovered/Resolved]
  - COVID-19 pneumonia [Recovered/Resolved]
  - Cough [Not Recovered/Not Resolved]
  - Pyrexia [Recovered/Resolved]
  - Nasal congestion [Recovered/Resolved]
  - Oropharyngeal pain [Recovered/Resolved]
  - Headache [Not Recovered/Not Resolved]
  - Myalgia [Recovered/Resolved]
  - Arthralgia [Recovered/Resolved]
  - Fatigue [Recovered/Resolved]
  - Diarrhoea [Recovered/Resolved]
  - Gait disturbance [Not Recovered/Not Resolved]
  - Fall [Unknown]
  - Clumsiness [Not Recovered/Not Resolved]
  - Muscle injury [Not Recovered/Not Resolved]
  - Musculoskeletal chest pain [Not Recovered/Not Resolved]
  - Back pain [Not Recovered/Not Resolved]
  - Migraine [Not Recovered/Not Resolved]
  - Pain [Not Recovered/Not Resolved]
  - Neuralgia [Not Recovered/Not Resolved]
  - Dry throat [Not Recovered/Not Resolved]
  - Ear pain [Recovered/Resolved]
  - Burning sensation [Recovering/Resolving]
  - Memory impairment [Not Recovered/Not Resolved]
  - Ear infection [Recovered/Resolved]
